FAERS Safety Report 7935474-2 (Version None)
Quarter: 2011Q4

REPORT INFORMATION
  Report Type: 
  Country: None (occurrence: None)
  Receive Date: 20111123
  Receipt Date: 20111114
  Transmission Date: 20120403
  Serious: Yes (Other)
  Sender: FDA-Public Use
  Company Number: US-AMGEN-USASP2011059911

PATIENT
  Sex: Female

DRUGS (12)
  1. LASIX [Concomitant]
  2. ARANESP [Suspect]
     Indication: MYELODYSPLASTIC SYNDROME
     Dosage: 200 MUG, Q3WK
  3. FLONASE [Concomitant]
  4. PRILOSEC [Concomitant]
  5. MIRALAX [Concomitant]
  6. ASCORBIC ACID [Concomitant]
  7. XANAX [Concomitant]
  8. COLACE [Concomitant]
  9. VITAMIN D [Concomitant]
  10. METOPROLOL TARTRATE [Concomitant]
  11. CYMBALTA [Concomitant]
  12. SENNA [Concomitant]

REACTIONS (10)
  - GENERAL PHYSICAL HEALTH DETERIORATION [None]
  - HAEMATOCRIT DECREASED [None]
  - DECREASED APPETITE [None]
  - URINARY RETENTION [None]
  - CONFUSIONAL STATE [None]
  - ABASIA [None]
  - HAEMOGLOBIN DECREASED [None]
  - ACTIVITIES OF DAILY LIVING IMPAIRED [None]
  - URINARY INCONTINENCE [None]
  - ASTHENIA [None]
